FAERS Safety Report 18395137 (Version 3)
Quarter: 2020Q4

REPORT INFORMATION
  Report Type: Spontaneous
  Country: US (occurrence: US)
  Receive Date: 20201016
  Receipt Date: 20201027
  Transmission Date: 20210114
  Serious: Yes (Hospitalization)
  Sender: FDA-Public Use
  Company Number: US-ROCHE-2696127

PATIENT
  Sex: Male

DRUGS (4)
  1. ESBRIET [Suspect]
     Active Substance: PIRFENIDONE
     Dosage: THREE 267 MG PILLS PER DOSE WITH MEALS; ONGOING: NO
     Route: 048
  2. ESBRIET [Suspect]
     Active Substance: PIRFENIDONE
     Dosage: TWO 267 MG PILLS PER DOSE FOR 7 DAYS; ONGOING: NO
     Route: 048
  3. ESBRIET [Suspect]
     Active Substance: PIRFENIDONE
     Indication: IDIOPATHIC PULMONARY FIBROSIS
     Dosage: 7 DAYS; ONGOING: NO
     Route: 048
     Dates: start: 202007
  4. ESBRIET [Suspect]
     Active Substance: PIRFENIDONE
     Indication: IDIOPATHIC PULMONARY FIBROSIS
     Dosage: 3 TABLETS, 3 TIMES A DAY ;ONGOING: NO
     Route: 048

REACTIONS (7)
  - Asthenia [Unknown]
  - Hypophagia [Not Recovered/Not Resolved]
  - Decreased appetite [Unknown]
  - Compression fracture [Unknown]
  - Illness [Unknown]
  - Fall [Unknown]
  - Fatigue [Unknown]
